FAERS Safety Report 5546908-5 (Version None)
Quarter: 2007Q4

REPORT INFORMATION
  Report Type: 
  Country: None (occurrence: None)
  Receive Date: 20071211
  Receipt Date: 20071129
  Transmission Date: 20080405
  Serious: Yes (Other)
  Sender: FDA-Public Use
  Company Number: US-PFIZER INC-2007047867

PATIENT
  Sex: Male
  Weight: 71.7 kg

DRUGS (3)
  1. CHANTIX [Suspect]
     Indication: SMOKING CESSATION THERAPY
     Dates: start: 20070206, end: 20070522
  2. CELEBREX [Concomitant]
  3. NABUMETONE [Concomitant]

REACTIONS (16)
  - ABNORMAL BEHAVIOUR [None]
  - ABNORMAL DREAMS [None]
  - ALOPECIA [None]
  - ARTHRALGIA [None]
  - BURNING SENSATION [None]
  - DRUG WITHDRAWAL SYNDROME [None]
  - EMOTIONAL DISTRESS [None]
  - EYE PAIN [None]
  - FEELING ABNORMAL [None]
  - HAEMORRHAGE [None]
  - HEADACHE [None]
  - MENTAL DISORDER [None]
  - PRURITUS [None]
  - SKIN DEPIGMENTATION [None]
  - SKIN DISCOLOURATION [None]
  - SKIN DISORDER [None]
